FAERS Safety Report 25732708 (Version 1)
Quarter: 2025Q3

REPORT INFORMATION
  Report Type: Report from Study
  Country: US (occurrence: US)
  Receive Date: 20250827
  Receipt Date: 20250827
  Transmission Date: 20251021
  Serious: Yes (Hospitalization)
  Sender: BIOGEN
  Company Number: US-BIOGEN-2025BI01321947

PATIENT
  Age: 72 Year
  Sex: Female

DRUGS (1)
  1. VUMERITY [Suspect]
     Active Substance: DIROXIMEL FUMARATE
     Indication: Multiple sclerosis
     Route: 050
     Dates: start: 20231012, end: 20250801

REACTIONS (2)
  - Multiple sclerosis relapse [Unknown]
  - Spondylitis [Unknown]

NARRATIVE: CASE EVENT DATE: 20250708
